FAERS Safety Report 17818897 (Version 2)
Quarter: 2020Q2

REPORT INFORMATION
  Report Type: Spontaneous
  Country: BR (occurrence: BR)
  Receive Date: 20200522
  Receipt Date: 20200601
  Transmission Date: 20200714
  Serious: Yes (Other)
  Sender: FDA-Public Use
  Company Number: BR-ABBVIE-20K-020-3413001-00

PATIENT
  Age: 70 Year
  Sex: Male
  Weight: 103 kg

DRUGS (16)
  1. GLIMEPIRIDE. [Concomitant]
     Active Substance: GLIMEPIRIDE
     Indication: DIABETES MELLITUS
  2. VENETOCLAX. [Suspect]
     Active Substance: VENETOCLAX
     Route: 048
     Dates: start: 2020, end: 20200505
  3. DULOXETINE. [Concomitant]
     Active Substance: DULOXETINE
     Indication: ANXIETY
  4. BACTRIM [Concomitant]
     Active Substance: SULFAMETHOXAZOLE\TRIMETHOPRIM
     Indication: PROPHYLAXIS
  5. OXIMAX [Concomitant]
     Active Substance: MOMETASONE FUROATE
     Indication: CHRONIC OBSTRUCTIVE PULMONARY DISEASE
     Dosage: INHALATION?1 JET IN THE MORNING
  6. DULOXETINE. [Concomitant]
     Active Substance: DULOXETINE
     Indication: DEPRESSION
  7. PIOGLITAZONE. [Concomitant]
     Active Substance: PIOGLITAZONE
     Indication: DIABETES MELLITUS
  8. NIMEGON MET [Concomitant]
     Active Substance: METFORMIN HYDROCHLORIDE\SITAGLIPTIN PHOSPHATE
     Indication: DIABETES MELLITUS
  9. ALLOPURINOL. [Concomitant]
     Active Substance: ALLOPURINOL
     Indication: PROPHYLAXIS
  10. SPIOLTO RESPIMAT [Concomitant]
     Active Substance: OLODATEROL HYDROCHLORIDE\TIOTROPIUM BROMIDE MONOHYDRATE
     Indication: CHRONIC OBSTRUCTIVE PULMONARY DISEASE
     Dosage: INHALATION?1 JET IN THE MORNING
  11. VENETOCLAX. [Suspect]
     Active Substance: VENETOCLAX
     Dosage: DAY 2   , STOP DATE WAS BETWEEN 07 AND 08 OF APR-2020?DURATION WAS BETWEEN 2 OR 3 DAYS
     Route: 048
     Dates: start: 20200405
  12. VENETOCLAX. [Suspect]
     Active Substance: VENETOCLAX
     Dosage: DURATION WAS 1  DAYS
     Route: 048
     Dates: start: 2020, end: 2020
  13. AZACITIDINE. [Suspect]
     Active Substance: AZACITIDINE
     Indication: ACUTE MYELOID LEUKAEMIA
     Dosage: 75 MG/M2
     Route: 042
     Dates: start: 20200404, end: 20200411
  14. VENETOCLAX. [Suspect]
     Active Substance: VENETOCLAX
     Indication: ACUTE MYELOID LEUKAEMIA
     Dosage: DAY 1
     Route: 048
     Dates: start: 20200404, end: 20200404
  15. AZACITIDINE. [Suspect]
     Active Substance: AZACITIDINE
     Dosage: 75 MG/M2
     Route: 042
     Dates: start: 20200504
  16. ACYCLOVIR. [Concomitant]
     Active Substance: ACYCLOVIR
     Indication: ANTIVIRAL PROPHYLAXIS

REACTIONS (6)
  - Neutropenia [Not Recovered/Not Resolved]
  - Blood creatinine increased [Recovered/Resolved]
  - Blood urea increased [Recovered/Resolved]
  - Renal disorder [Recovered/Resolved]
  - Blood uric acid increased [Recovered/Resolved]
  - Pancytopenia [Not Recovered/Not Resolved]

NARRATIVE: CASE EVENT DATE: 20200405
